FAERS Safety Report 9769467 (Version 2)
Quarter: 2013Q4

REPORT INFORMATION
  Report Type: Report from Study
  Country: US (occurrence: US)
  Receive Date: 20131218
  Receipt Date: 20131218
  Transmission Date: 20140711
  Serious: Yes (Death, Hospitalization, Other)
  Sender: FDA-Public Use
  Company Number: US-SA-CLOF-1002255

PATIENT
  Age: 76 Year
  Sex: Female
  Weight: 99.1 kg

DRUGS (5)
  1. CLOFARABINE [Suspect]
     Indication: ACUTE MYELOID LEUKAEMIA
     Dosage: 30 MG/M2, QD
     Route: 042
     Dates: start: 20120601, end: 20120605
  2. CLOFARABINE [Suspect]
     Indication: ACUTE MYELOID LEUKAEMIA
     Dosage: 20 MG/M2, QD
     Route: 042
     Dates: start: 20120702, end: 20120706
  3. ACYCLOVIR [Concomitant]
     Indication: PROPHYLAXIS
     Route: 065
  4. FLUCONAZOLE [Concomitant]
     Indication: PROPHYLAXIS
     Route: 065
  5. ALLOPURINOL [Concomitant]
     Route: 065

REACTIONS (10)
  - Acute myeloid leukaemia [Fatal]
  - Platelet count decreased [Unknown]
  - Neutropenia [Not Recovered/Not Resolved]
  - Lung infection [Recovered/Resolved]
  - Staphylococcal infection [Unknown]
  - Respiratory failure [Unknown]
  - Asthenia [Unknown]
  - Body temperature increased [Unknown]
  - Anaemia [Unknown]
  - Therapeutic response decreased [Unknown]
